FAERS Safety Report 15607925 (Version 1)
Quarter: 2018Q4

REPORT INFORMATION
  Report Type: Spontaneous
  Country: GB (occurrence: GB)
  Receive Date: 20181112
  Receipt Date: 20181112
  Transmission Date: 20190205
  Serious: Yes (Other)
  Sender: FDA-Public Use
  Company Number: GB-TEVA-2018-GB-974426

PATIENT
  Age: 57 Year
  Sex: Female
  Weight: 91.16 kg

DRUGS (2)
  1. VENTOLIN [Concomitant]
     Active Substance: ALBUTEROL SULFATE
  2. NITROFURANTOIN. [Suspect]
     Active Substance: NITROFURANTOIN
     Indication: URINARY TRACT INFECTION
     Dosage: 200 MILLIGRAM DAILY;
     Route: 048
     Dates: start: 20181008, end: 20181009

REACTIONS (7)
  - Dyspnoea [Unknown]
  - Skin discolouration [Unknown]
  - Tremor [Recovering/Resolving]
  - Nausea [Unknown]
  - Feeling cold [Recovering/Resolving]
  - Chills [Recovering/Resolving]
  - Disorientation [Unknown]

NARRATIVE: CASE EVENT DATE: 20181009
